FAERS Safety Report 6730811-9 (Version None)
Quarter: 2010Q2

REPORT INFORMATION
  Report Type: 
  Country: None (occurrence: None)
  Receive Date: 20100518
  Receipt Date: 20100506
  Transmission Date: 20101027
  Serious: Yes (Other)
  Sender: FDA-Public Use
  Company Number: CA-JNJFOC-20100503110

PATIENT
  Age: 15 Year
  Sex: Female

DRUGS (5)
  1. INFLIXIMAB [Suspect]
     Indication: JUVENILE ARTHRITIS
     Dosage: DURATION OF THERAPY 13 MONTHS
     Route: 042
  2. METHOTREXATE [Concomitant]
     Indication: JUVENILE ARTHRITIS
     Route: 058
  3. KETOROLAC TROMETHAMINE [Concomitant]
     Indication: JUVENILE ARTHRITIS
  4. PREDNISONE [Concomitant]
     Indication: JUVENILE ARTHRITIS
  5. METHOTREXATE [Concomitant]
     Dosage: DOSE ALSO REPORTED AS 0.3 MG/KG/WEEK
     Route: 058

REACTIONS (3)
  - INFECTED CYST [None]
  - SYNOVIAL CYST [None]
  - SYNOVIAL RUPTURE [None]
